FAERS Safety Report 19795087 (Version 1)
Quarter: 2021Q3

REPORT INFORMATION
  Report Type: Spontaneous
  Country: US (occurrence: US)
  Receive Date: 20210904
  Receipt Date: 20210904
  Transmission Date: 20211014
  Serious: No
  Sender: FDA-Public Use
  Company Number: None

PATIENT
  Age: 39 Year
  Sex: Female
  Weight: 56.25 kg

DRUGS (5)
  1. VITAMIN C [Concomitant]
     Active Substance: ASCORBIC ACID
  2. ZINC. [Concomitant]
     Active Substance: ZINC
  3. ELDERBERRY SYRUP [Concomitant]
     Active Substance: DIETARY SUPPLEMENT\HERBALS
  4. MELATONIN [Concomitant]
     Active Substance: MELATONIN
  5. REGEN?COV [Suspect]
     Active Substance: CASIRIVIMAB\IMDEVIMAB
     Indication: COVID-19
     Dates: start: 20210903, end: 20210903

REACTIONS (2)
  - Infusion related reaction [None]
  - Rash [None]

NARRATIVE: CASE EVENT DATE: 20210904
